FAERS Safety Report 8726447 (Version 2)
Quarter: 2012Q4

REPORT INFORMATION
  Report Type: 
  Country: JP (occurrence: US)
  Receive Date: 20120816
  Receipt Date: 20120903
  Transmission Date: 20130627
  Serious: Yes (Other)
  Sender: FDA-Public Use
  Company Number: US-BRISTOL-MYERS SQUIBB COMPANY-16838732

PATIENT
  Age: 48 Year
  Sex: Female

DRUGS (4)
  1. MITOMYCIN-C [Suspect]
     Indication: ANAL CANCER
     Dosage: Injection
     Route: 065
  2. MITOMYCIN-C [Suspect]
     Indication: ANAL CANCER
  3. ADRIAMYCIN [Suspect]
     Indication: ANAL CANCER
  4. 5-FLUOROURACIL [Suspect]
     Indication: ANAL CANCER

REACTIONS (1)
  - Pulmonary veno-occlusive disease [Unknown]
